FAERS Safety Report 24078930 (Version 1)
Quarter: 2024Q3

REPORT INFORMATION
  Report Type: Spontaneous
  Country: DE (occurrence: DE)
  Receive Date: 20240711
  Receipt Date: 20240711
  Transmission Date: 20241016
  Serious: Yes (Other)
  Sender: CSL BEHRING
  Company Number: None

PATIENT
  Age: 28 Year
  Sex: Female
  Weight: 65 kg

DRUGS (2)
  1. RHOPHYLAC [Suspect]
     Active Substance: HUMAN RHO(D) IMMUNE GLOBULIN
     Indication: Product used for unknown indication
     Dosage: 1
     Route: 065
     Dates: start: 20240520
  2. RHOPHYLAC [Suspect]
     Active Substance: HUMAN RHO(D) IMMUNE GLOBULIN
     Indication: Product used for unknown indication
     Dosage: 1
     Route: 065
     Dates: start: 20240520

REACTIONS (6)
  - Angina pectoris [Recovering/Resolving]
  - Lymphadenopathy [Recovering/Resolving]
  - Breast pain [Recovering/Resolving]
  - Lymphadenopathy [Recovering/Resolving]
  - Dyspnoea [Recovering/Resolving]
  - Maternal exposure during pregnancy [Unknown]

NARRATIVE: CASE EVENT DATE: 20240524
